FAERS Safety Report 6927522-3 (Version None)
Quarter: 2010Q3

REPORT INFORMATION
  Report Type: 
  Country: None (occurrence: None)
  Receive Date: 20100816
  Receipt Date: 20100816
  Transmission Date: 20110219
  Serious: Yes (Life-Threatening, Hospitalization, Other)
  Sender: FDA-Public Use
  Company Number: None

PATIENT
  Age: 49 Year
  Sex: Female
  Weight: 72.5755 kg

DRUGS (1)
  1. VENOFER [Suspect]
     Indication: BLOOD IRON DECREASED
     Dosage: VALUE OF IV (FULL) 1X
     Dates: start: 20100722

REACTIONS (3)
  - BURNING SENSATION [None]
  - HYPERSENSITIVITY [None]
  - PARAESTHESIA [None]
